FAERS Safety Report 17705450 (Version 1)
Quarter: 2020Q2

REPORT INFORMATION
  Report Type: Report from Study
  Country: ZA (occurrence: ZA)
  Receive Date: 20200424
  Receipt Date: 20200424
  Transmission Date: 20200714
  Serious: Yes (Other)
  Sender: FDA-Public Use
  Company Number: ZA-JNJFOC-20200424425

PATIENT
  Sex: Female

DRUGS (1)
  1. SIMPONI [Suspect]
     Active Substance: GOLIMUMAB
     Indication: PRODUCT USED FOR UNKNOWN INDICATION
     Route: 058
     Dates: start: 20200224

REACTIONS (6)
  - Alopecia [Unknown]
  - Injection site haemorrhage [Unknown]
  - Arthralgia [Unknown]
  - Hot flush [Unknown]
  - Bone disorder [Unknown]
  - Uveitis [Unknown]

NARRATIVE: CASE EVENT DATE: 20200323
